FAERS Safety Report 8852975 (Version 1)
Quarter: 2012Q4

REPORT INFORMATION
  Report Type: 
  Country: US (occurrence: US)
  Receive Date: 20121022
  Receipt Date: 20121022
  Transmission Date: 20130627
  Serious: Yes (Hospitalization)
  Sender: FDA-Public Use
  Company Number: PHHO2011US13036

PATIENT
  Age: 64 Year
  Sex: Female
  Weight: 45 kg

DRUGS (8)
  1. FUROSEMIDE [Suspect]
     Dosage: 80 mg, TID
     Dates: start: 20100111
  2. IMATINIB [Suspect]
     Indication: PULMONARY ARTERIAL HYPERTENSION
     Dosage: 200 mg, QD
     Route: 048
     Dates: start: 20100930, end: 20110725
  3. IMATINIB [Suspect]
     Dosage: 200 mg, UNK
     Dates: start: 20111003
  4. EPOPROSTENOL [Concomitant]
     Indication: PULMONARY ARTERIAL HYPERTENSION
     Dosage: 100 ml, UNK
     Route: 042
     Dates: start: 20091010
  5. TRACLEER [Concomitant]
     Indication: PULMONARY ARTERIAL HYPERTENSION
     Dosage: 125 mg, BID
     Route: 048
     Dates: start: 20060414
  6. TADALAFIL [Concomitant]
     Indication: PULMONARY ARTERIAL HYPERTENSION
     Dosage: 20 mg, QD
     Route: 048
     Dates: start: 20091223, end: 20110725
  7. METOLAZONE [Concomitant]
     Indication: PULMONARY ARTERIAL HYPERTENSION
     Dosage: 2.5 mg, QD
     Route: 048
     Dates: start: 20100106
  8. OXYGEN [Concomitant]
     Indication: PULMONARY ARTERIAL HYPERTENSION
     Dosage: 10 L/ min
     Route: 045
     Dates: start: 20100824

REACTIONS (3)
  - Renal failure [Recovering/Resolving]
  - Respiratory failure [Recovering/Resolving]
  - Hyponatraemia [Recovering/Resolving]
